FAERS Safety Report 21354920 (Version 2)
Quarter: 2022Q4

REPORT INFORMATION
  Report Type: Spontaneous
  Country: JP (occurrence: JP)
  Receive Date: 20220920
  Receipt Date: 20221130
  Transmission Date: 20230112
  Serious: Yes (Death, Other)
  Sender: FDA-Public Use
  Company Number: JP-JAZZ-2022-JP-029800

PATIENT
  Age: 63 Year
  Sex: Male
  Weight: 67.7 kg

DRUGS (3)
  1. DEFITELIO [Suspect]
     Active Substance: DEFIBROTIDE SODIUM
     Indication: Venoocclusive liver disease
     Dosage: 25 MILLIGRAM/KILOGRAM/24 HOURS
     Route: 042
     Dates: start: 20220214, end: 20220313
  2. CARPERITIDE [Suspect]
     Active Substance: CARPERITIDE
     Indication: Fluid retention
     Dosage: UNK
     Route: 042
     Dates: start: 20220207, end: 202202
  3. CARPERITIDE [Suspect]
     Active Substance: CARPERITIDE
     Dosage: UNK
     Route: 042
     Dates: start: 20220223

REACTIONS (4)
  - Nephropathy toxic [Fatal]
  - Depressed level of consciousness [Unknown]
  - Seizure [Unknown]
  - Hypotension [Recovered/Resolved]

NARRATIVE: CASE EVENT DATE: 20220223
